FAERS Safety Report 9789875 (Version 1)
Quarter: 2013Q4

REPORT INFORMATION
  Report Type: Spontaneous
  Country: US (occurrence: None)
  Receive Date: 20131230
  Receipt Date: 20131230
  Transmission Date: 20140711
  Serious: Yes (Disabling)
  Sender: FDA-Public Use
  Company Number: None

PATIENT
  Sex: 0

DRUGS (1)
  1. METRONIDAZOL [Suspect]
     Indication: GASTROINTESTINAL INFECTION
     Route: 048

REACTIONS (4)
  - Arthralgia [None]
  - Arthralgia [None]
  - Arthropathy [None]
  - Local swelling [None]
